FAERS Safety Report 7933604-X (Version None)
Quarter: 2011Q4

REPORT INFORMATION
  Report Type: 
  Country: None (occurrence: None)
  Receive Date: 20111122
  Receipt Date: 20111116
  Transmission Date: 20120403
  Serious: Yes (Other)
  Sender: FDA-Public Use
  Company Number: CH-ROCHE-1007108

PATIENT
  Sex: Female

DRUGS (3)
  1. ISOTRETINOIN [Suspect]
     Indication: SUBCUTANEOUS ABSCESS
     Route: 048
     Dates: start: 19980101
  2. DEPAKENE [Concomitant]
     Indication: EPILEPSY
     Route: 065
  3. TILUR [Concomitant]
     Route: 065
     Dates: start: 19980101

REACTIONS (1)
  - EPILEPSY [None]
